FAERS Safety Report 11942400 (Version 1)
Quarter: 2016Q1

REPORT INFORMATION
  Report Type: Spontaneous
  Country: US (occurrence: US)
  Receive Date: 20160125
  Receipt Date: 20160125
  Transmission Date: 20160526
  Serious: Yes (Other)
  Sender: FDA-Public Use
  Company Number: US-ZYDUS-010053

PATIENT
  Age: 35 Year
  Sex: Female

DRUGS (1)
  1. OMEPRAZOLE. [Suspect]
     Active Substance: OMEPRAZOLE
     Indication: DYSPHAGIA
     Route: 048

REACTIONS (4)
  - Exposure during pregnancy [Unknown]
  - Pulmonary tuberculosis [Unknown]
  - Tuberculosis [Unknown]
  - Reflux laryngitis [Unknown]
